FAERS Safety Report 7824884-X (Version None)
Quarter: 2011Q4

REPORT INFORMATION
  Report Type: 
  Country: None (occurrence: None)
  Receive Date: 20111019
  Receipt Date: 20110622
  Transmission Date: 20120403
  Serious: No
  Sender: FDA-Public Use
  Company Number: US-BRISTOL-MYERS SQUIBB COMPANY-15554314

PATIENT
  Age: 59 Year
  Sex: Female
  Weight: 110 kg

DRUGS (4)
  1. SPIRIVA [Concomitant]
  2. ADVAIR DISKUS 100/50 [Concomitant]
  3. AVALIDE [Suspect]
     Indication: HYPERTENSION
  4. NORVASC [Suspect]
     Dosage: USED FOR A YEAR OR TWO

REACTIONS (1)
  - BLOOD PRESSURE INCREASED [None]
